FAERS Safety Report 17949151 (Version 1)
Quarter: 2020Q2

REPORT INFORMATION
  Report Type: Spontaneous
  Country: US (occurrence: US)
  Receive Date: 20200626
  Receipt Date: 20200626
  Transmission Date: 20200714
  Serious: No
  Sender: FDA-Public Use
  Company Number: US-LEO PHARMA-330196

PATIENT
  Age: 62 Year
  Sex: Male

DRUGS (1)
  1. SKINOREN CUTANEOUS FOAM [Suspect]
     Active Substance: AZELAIC ACID
     Indication: ROSACEA
     Route: 061
     Dates: start: 20200618

REACTIONS (2)
  - Burning sensation [Recovering/Resolving]
  - Inappropriate schedule of product administration [Unknown]
